FAERS Safety Report 18962800 (Version 1)
Quarter: 2021Q1

REPORT INFORMATION
  Report Type: Spontaneous
  Country: US (occurrence: US)
  Receive Date: 20210303
  Receipt Date: 20210303
  Transmission Date: 20210420
  Serious: No
  Sender: FDA-Public Use
  Company Number: US-GW PHARMA-202102USGW00719

PATIENT

DRUGS (4)
  1. EPIDIOLEX [Suspect]
     Active Substance: CANNABIDIOL
     Dosage: 100 MILLIGRAM, BID (TITRATED UP)
     Route: 048
  2. EPIDIOLEX [Suspect]
     Active Substance: CANNABIDIOL
     Dosage: 50 MILLIGRAM, BID (TITRATED DOWN) AND WILL BE OFF MEDICATION IN 3 WK
     Route: 048
  3. EPIDIOLEX [Suspect]
     Active Substance: CANNABIDIOL
     Indication: IDIOPATHIC GENERALISED EPILEPSY
     Dosage: 400 MILLIGRAM, BID
     Route: 048
     Dates: start: 202002
  4. EPIDIOLEX [Suspect]
     Active Substance: CANNABIDIOL
     Dosage: DOSE REDUCED
     Route: 048

REACTIONS (2)
  - Seizure [Unknown]
  - Product use in unapproved indication [Unknown]
